FAERS Safety Report 7525199-X (Version None)
Quarter: 2011Q2

REPORT INFORMATION
  Report Type: 
  Country: None (occurrence: None)
  Receive Date: 20110526
  Receipt Date: 20110517
  Transmission Date: 20111010
  Serious: Yes (Hospitalization)
  Sender: FDA-Public Use
  Company Number: DKLU1069676

PATIENT
  Age: 2 Year
  Sex: Male

DRUGS (5)
  1. TOPIRAMATE [Concomitant]
  2. PHENOBARBITAL TAB [Concomitant]
  3. SABRIL [Suspect]
     Indication: INFANTILE SPASMS
     Dosage: 600 MG MILLIGRAM(S), 2 IN 1 D, ORAL; 500 MG MILLIGRAM(S), 1 IN 1 D, ORAL; 7.5 ML 2 IN I D ORAL
     Route: 048
     Dates: start: 20100225
  4. SABRIL [Suspect]
     Indication: INFANTILE SPASMS
     Dosage: 600 MG MILLIGRAM(S), 2 IN 1 D, ORAL; 500 MG MILLIGRAM(S), 1 IN 1 D, ORAL; 7.5 ML 2 IN I D ORAL
     Route: 048
     Dates: start: 20110101
  5. SABRIL [Suspect]
     Indication: INFANTILE SPASMS
     Dosage: 600 MG MILLIGRAM(S), 2 IN 1 D, ORAL; 500 MG MILLIGRAM(S), 1 IN 1 D, ORAL; 7.5 ML 2 IN I D ORAL
     Route: 048
     Dates: start: 20100101, end: 20110101

REACTIONS (3)
  - RENAL FAILURE [None]
  - MALAISE [None]
  - HEPATIC FAILURE [None]
